FAERS Safety Report 23258866 (Version 1)
Quarter: 2023Q4

REPORT INFORMATION
  Report Type: Spontaneous
  Country: CZ (occurrence: CZ)
  Receive Date: 20231204
  Receipt Date: 20231204
  Transmission Date: 20240110
  Serious: Yes (Hospitalization, Disabling)
  Sender: FDA-Public Use
  Company Number: None

PATIENT
  Age: 69 Year
  Sex: Female
  Weight: 76.5 kg

DRUGS (3)
  1. BONVIVA [Suspect]
     Active Substance: IBANDRONATE SODIUM
     Indication: Osteoporosis
     Route: 048
  2. VIGANTOL [Concomitant]
     Indication: Product used for unknown indication
  3. CALCICHEW D3 LEMON [Concomitant]
     Indication: Product used for unknown indication

REACTIONS (2)
  - Atypical femur fracture [Recovering/Resolving]
  - Pathological fracture [Recovering/Resolving]
